FAERS Safety Report 15751594 (Version 1)
Quarter: 2018Q4

REPORT INFORMATION
  Report Type: Spontaneous
  Country: US (occurrence: US)
  Receive Date: 20181221
  Receipt Date: 20181221
  Transmission Date: 20190205
  Serious: No
  Sender: FDA-Public Use
  Company Number: US-UPSHER-SMITH LABORATORIES, LLC-2017USL00293

PATIENT
  Sex: Female

DRUGS (2)
  1. KLOR-CON M [Suspect]
     Active Substance: POTASSIUM CHLORIDE
     Indication: MINERAL SUPPLEMENTATION
  2. KLOR-CON [Suspect]
     Active Substance: POTASSIUM CHLORIDE
     Indication: MINERAL SUPPLEMENTATION

REACTIONS (2)
  - Gastric disorder [Not Recovered/Not Resolved]
  - Abdominal discomfort [Not Recovered/Not Resolved]
